FAERS Safety Report 9217776 (Version 3)
Quarter: 2015Q2

REPORT INFORMATION
  Report Type: Spontaneous
  Country: US (occurrence: US)
  Receive Date: 20130408
  Receipt Date: 20150623
  Transmission Date: 20150821
  Serious: Yes (Hospitalization, Other)
  Sender: FDA-Public Use
  Company Number: US-009507513-1304USA002502

PATIENT
  Sex: Male

DRUGS (1)
  1. PROPECIA [Suspect]
     Active Substance: FINASTERIDE
     Indication: ALOPECIA
     Dosage: 1 MG, QD
     Route: 048
     Dates: start: 20070702, end: 20120130

REACTIONS (18)
  - Hypogonadism [Unknown]
  - Varicocele [Unknown]
  - Hypopituitarism [Unknown]
  - Anxiety disorder [Unknown]
  - Sexual dysfunction [Not Recovered/Not Resolved]
  - Testicular pain [Unknown]
  - Neck surgery [Unknown]
  - Testicular atrophy [Unknown]
  - Fatigue [Unknown]
  - Loss of libido [Unknown]
  - Gynaecomastia [Unknown]
  - Bipolar disorder [Not Recovered/Not Resolved]
  - Dissociative identity disorder [Not Recovered/Not Resolved]
  - Depression suicidal [Not Recovered/Not Resolved]
  - Insomnia [Unknown]
  - Erectile dysfunction [Unknown]
  - Cognitive disorder [Not Recovered/Not Resolved]
  - Solar lentigo [Unknown]

NARRATIVE: CASE EVENT DATE: 2007
